FAERS Safety Report 24608369 (Version 2)
Quarter: 2025Q1

REPORT INFORMATION
  Report Type: Spontaneous
  Country: CA (occurrence: CA)
  Receive Date: 20241112
  Receipt Date: 20250101
  Transmission Date: 20250409
  Serious: Yes (Death, Other)
  Sender: BRISTOL-MYERS SQUIBB COMPANY
  Company Number: CA-BRISTOL-MYERS SQUIBB COMPANY-2024-176052

PATIENT
  Age: 40 Year
  Sex: Female
  Weight: 73 kg

DRUGS (162)
  1. ORENCIA [Suspect]
     Active Substance: ABATACEPT
     Indication: Rheumatoid arthritis
     Route: 058
  2. ORENCIA [Suspect]
     Active Substance: ABATACEPT
     Indication: Rheumatoid arthritis
  3. ORENCIA [Suspect]
     Active Substance: ABATACEPT
  4. ORENCIA [Suspect]
     Active Substance: ABATACEPT
  5. ORENCIA [Suspect]
     Active Substance: ABATACEPT
     Indication: Rheumatoid arthritis
     Route: 040
  6. ORENCIA [Suspect]
     Active Substance: ABATACEPT
     Route: 040
  7. ORENCIA [Suspect]
     Active Substance: ABATACEPT
     Route: 040
  8. FLUMETHASONE [Concomitant]
     Active Substance: FLUMETHASONE
     Indication: Product used for unknown indication
     Route: 058
  9. ACETAMINOPHEN [Concomitant]
     Active Substance: ACETAMINOPHEN
     Indication: Product used for unknown indication
  10. ACTEMRA [Concomitant]
     Active Substance: TOCILIZUMAB
     Indication: Rheumatoid arthritis
     Route: 040
  11. ACTEMRA [Concomitant]
     Active Substance: TOCILIZUMAB
     Route: 058
  12. ACTEMRA [Concomitant]
     Active Substance: TOCILIZUMAB
  13. ACTEMRA [Concomitant]
     Active Substance: TOCILIZUMAB
     Route: 042
  14. ACTEMRA [Concomitant]
     Active Substance: TOCILIZUMAB
     Route: 058
  15. ACTEMRA [Concomitant]
     Active Substance: TOCILIZUMAB
     Route: 058
  16. ACTEMRA [Concomitant]
     Active Substance: TOCILIZUMAB
     Route: 040
  17. ACTEMRA [Concomitant]
     Active Substance: TOCILIZUMAB
     Route: 042
  18. ACTEMRA [Concomitant]
     Active Substance: TOCILIZUMAB
  19. ACTEMRA [Concomitant]
     Active Substance: TOCILIZUMAB
     Route: 040
  20. ACTEMRA [Concomitant]
     Active Substance: TOCILIZUMAB
  21. ACTEMRA [Concomitant]
     Active Substance: TOCILIZUMAB
     Route: 040
  22. ACTEMRA [Concomitant]
     Active Substance: TOCILIZUMAB
     Route: 040
  23. ADALIMUMAB [Concomitant]
     Active Substance: ADALIMUMAB
     Indication: Rheumatoid arthritis
     Route: 058
  24. AIMOVIG [Concomitant]
     Active Substance: ERENUMAB-AOOE
     Indication: Migraine
  25. ALENDRONATE SODIUM [Concomitant]
     Active Substance: ALENDRONATE SODIUM
     Indication: Product used for unknown indication
  26. LEFLUNOMIDE [Concomitant]
     Active Substance: LEFLUNOMIDE
     Indication: Rheumatoid arthritis
     Route: 048
  27. LEFLUNOMIDE [Concomitant]
     Active Substance: LEFLUNOMIDE
     Route: 048
  28. LEFLUNOMIDE [Concomitant]
     Active Substance: LEFLUNOMIDE
     Route: 048
  29. LEFLUNOMIDE [Concomitant]
     Active Substance: LEFLUNOMIDE
  30. PREDNISONE [Concomitant]
     Active Substance: PREDNISONE
     Indication: Rheumatoid arthritis
     Route: 048
  31. PREDNISONE [Concomitant]
     Active Substance: PREDNISONE
     Route: 048
  32. PREDNISONE [Concomitant]
     Active Substance: PREDNISONE
  33. PREDNISONE [Concomitant]
     Active Substance: PREDNISONE
  34. ARAVA [Concomitant]
     Active Substance: LEFLUNOMIDE
     Indication: Rheumatoid arthritis
     Route: 048
  35. AZATHIOPRINE [Concomitant]
     Active Substance: AZATHIOPRINE
     Indication: Product used for unknown indication
  36. CETIRIZINE [Concomitant]
     Active Substance: CETIRIZINE HYDROCHLORIDE
     Indication: Rheumatoid arthritis
     Route: 048
  37. CETIRIZINE [Concomitant]
     Active Substance: CETIRIZINE HYDROCHLORIDE
     Route: 048
  38. CETIRIZINE [Concomitant]
     Active Substance: CETIRIZINE HYDROCHLORIDE
  39. CHLORHEXIDINE GLUCONATE [Concomitant]
     Active Substance: CHLORHEXIDINE GLUCONATE
     Indication: Product used for unknown indication
     Route: 002
  40. CIMZIA [Concomitant]
     Active Substance: CERTOLIZUMAB PEGOL
     Indication: Rheumatoid arthritis
     Route: 058
  41. CIMZIA [Concomitant]
     Active Substance: CERTOLIZUMAB PEGOL
     Route: 058
  42. CORTISONE ACETATE [Concomitant]
     Active Substance: CORTISONE ACETATE
     Indication: Product used for unknown indication
  43. COSENTYX [Concomitant]
     Active Substance: SECUKINUMAB
     Indication: Product used for unknown indication
  44. DESOGESTREL\ETHINYL ESTRADIOL [Concomitant]
     Active Substance: DESOGESTREL\ETHINYL ESTRADIOL
     Indication: Product used for unknown indication
  45. DESOXIMETASONE [Concomitant]
     Active Substance: DESOXIMETASONE
     Indication: Rheumatoid arthritis
     Route: 048
  46. DESOXIMETASONE [Concomitant]
     Active Substance: DESOXIMETASONE
     Route: 058
  47. DESOXIMETASONE [Concomitant]
     Active Substance: DESOXIMETASONE
     Route: 048
  48. DICLOFENAC SODIUM [Concomitant]
     Active Substance: DICLOFENAC SODIUM
     Indication: Product used for unknown indication
  49. ENBREL [Concomitant]
     Active Substance: ETANERCEPT
     Indication: Rheumatoid arthritis
     Route: 058
  50. ENBREL [Concomitant]
     Active Substance: ETANERCEPT
  51. ENBREL [Concomitant]
     Active Substance: ETANERCEPT
  52. ENBREL [Concomitant]
     Active Substance: ETANERCEPT
     Route: 058
  53. ENBREL [Concomitant]
     Active Substance: ETANERCEPT
     Route: 058
  54. ENBREL [Concomitant]
     Active Substance: ETANERCEPT
     Route: 058
  55. FOLIC ACID [Concomitant]
     Active Substance: FOLIC ACID
     Indication: Product used for unknown indication
     Route: 048
  56. FOLIC ACID [Concomitant]
     Active Substance: FOLIC ACID
  57. FOLIC ACID [Concomitant]
     Active Substance: FOLIC ACID
     Route: 048
  58. FOLIC ACID [Concomitant]
     Active Substance: FOLIC ACID
     Route: 048
  59. FOLIC ACID [Concomitant]
     Active Substance: FOLIC ACID
     Route: 058
  60. FOLIC ACID [Concomitant]
     Active Substance: FOLIC ACID
  61. FOLIC ACID [Concomitant]
     Active Substance: FOLIC ACID
     Route: 048
  62. FOSAMAX [Concomitant]
     Active Substance: ALENDRONATE SODIUM
     Indication: Product used for unknown indication
     Route: 048
  63. FOSAMAX [Concomitant]
     Active Substance: ALENDRONATE SODIUM
  64. GOLD [Concomitant]
     Active Substance: GOLD
     Indication: Product used for unknown indication
  65. HYDROCORTISONE [Concomitant]
     Active Substance: HYDROCORTISONE
     Indication: Rheumatoid arthritis
  66. HYDROXYCHLOROQUINE [Concomitant]
     Active Substance: HYDROXYCHLOROQUINE
     Indication: Product used for unknown indication
  67. HYDROXYCHLOROQUINE SULFATE [Concomitant]
     Active Substance: HYDROXYCHLOROQUINE SULFATE
     Indication: Rheumatoid arthritis
  68. HYDROXYCHLOROQUINE SULFATE [Concomitant]
     Active Substance: HYDROXYCHLOROQUINE SULFATE
     Route: 048
  69. HYDROXYCHLOROQUINE SULFATE [Concomitant]
     Active Substance: HYDROXYCHLOROQUINE SULFATE
  70. HYDROXYCHLOROQUINE SULFATE [Concomitant]
     Active Substance: HYDROXYCHLOROQUINE SULFATE
     Route: 048
  71. HYDROXYCHLOROQUINE SULFATE [Concomitant]
     Active Substance: HYDROXYCHLOROQUINE SULFATE
     Route: 048
  72. INFLIXIMAB [Concomitant]
     Active Substance: INFLIXIMAB
     Indication: Rheumatoid arthritis
     Route: 040
  73. INFLIXIMAB [Concomitant]
     Active Substance: INFLIXIMAB
     Route: 048
  74. LEFLUNOMIDE [Concomitant]
     Active Substance: LEFLUNOMIDE
     Indication: Rheumatoid arthritis
  75. LEFLUNOMIDE [Concomitant]
     Active Substance: LEFLUNOMIDE
     Route: 048
  76. LEFLUNOMIDE [Concomitant]
     Active Substance: LEFLUNOMIDE
  77. CLIOQUINOL\FLUMETHASONE [Concomitant]
     Active Substance: CLIOQUINOL\FLUMETHASONE
     Indication: Product used for unknown indication
     Route: 058
  78. METHOTREXATE [Concomitant]
     Active Substance: METHOTREXATE
     Indication: Rheumatoid arthritis
     Route: 058
  79. METHOTREXATE [Concomitant]
     Active Substance: METHOTREXATE
     Route: 058
  80. METHOTREXATE [Concomitant]
     Active Substance: METHOTREXATE
     Route: 048
  81. METHOTREXATE [Concomitant]
     Active Substance: METHOTREXATE
     Route: 058
  82. METHOTREXATE [Concomitant]
     Active Substance: METHOTREXATE
     Route: 048
  83. METHOTREXATE [Concomitant]
     Active Substance: METHOTREXATE
     Route: 048
  84. METHYLPREDNISOLONE [Concomitant]
     Active Substance: METHYLPREDNISOLONE
     Indication: Product used for unknown indication
  85. MINOCYCLINE [Concomitant]
     Active Substance: MINOCYCLINE HYDROCHLORIDE
     Indication: Rheumatoid arthritis
  86. MYOCHRYSINE [Concomitant]
     Active Substance: GOLD SODIUM THIOMALATE
     Indication: Rheumatoid arthritis
     Route: 030
  87. NAPROXEN [Concomitant]
     Active Substance: NAPROXEN
     Indication: Product used for unknown indication
  88. OTEZLA [Concomitant]
     Active Substance: APREMILAST
     Indication: Rheumatoid arthritis
  89. PHTHALYLSULFATHIAZOLE [Concomitant]
     Active Substance: PHTHALYLSULFATHIAZOLE
     Indication: Product used for unknown indication
     Route: 058
  90. PHTHALYLSULFATHIAZOLE [Concomitant]
     Active Substance: PHTHALYLSULFATHIAZOLE
     Route: 048
  91. PHTHALYLSULFATHIAZOLE [Concomitant]
     Active Substance: PHTHALYLSULFATHIAZOLE
  92. PHTHALYLSULFATHIAZOLE [Concomitant]
     Active Substance: PHTHALYLSULFATHIAZOLE
     Route: 048
  93. PHTHALYLSULFATHIAZOLE [Concomitant]
     Active Substance: PHTHALYLSULFATHIAZOLE
     Route: 048
  94. PHTHALYLSULFATHIAZOLE [Concomitant]
     Active Substance: PHTHALYLSULFATHIAZOLE
  95. PHTHALYLSULFATHIAZOLE [Concomitant]
     Active Substance: PHTHALYLSULFATHIAZOLE
     Route: 058
  96. PREDNISONE [Concomitant]
     Active Substance: PREDNISONE
     Indication: Rheumatoid arthritis
  97. PREDNISONE [Concomitant]
     Active Substance: PREDNISONE
  98. PREDNISONE [Concomitant]
     Active Substance: PREDNISONE
     Route: 048
  99. PREDNISONE [Concomitant]
     Active Substance: PREDNISONE
  100. PREDNISONE [Concomitant]
     Active Substance: PREDNISONE
     Route: 048
  101. PSEUDOEPHEDRINE HYDROCHLORIDE [Concomitant]
     Active Substance: PSEUDOEPHEDRINE HYDROCHLORIDE
     Indication: Rheumatoid arthritis
  102. PSEUDOEPHEDRINE HYDROCHLORIDE [Concomitant]
     Active Substance: PSEUDOEPHEDRINE HYDROCHLORIDE
  103. PSEUDOEPHEDRINE HYDROCHLORIDE [Concomitant]
     Active Substance: PSEUDOEPHEDRINE HYDROCHLORIDE
  104. PSEUDOEPHEDRINE HYDROCHLORIDE [Concomitant]
     Active Substance: PSEUDOEPHEDRINE HYDROCHLORIDE
  105. REMICADE [Concomitant]
     Active Substance: INFLIXIMAB
     Indication: Rheumatoid arthritis
     Route: 058
  106. REMICADE [Concomitant]
     Active Substance: INFLIXIMAB
  107. REMICADE [Concomitant]
     Active Substance: INFLIXIMAB
     Route: 040
  108. REMICADE [Concomitant]
     Active Substance: INFLIXIMAB
     Route: 040
  109. REMICADE [Concomitant]
     Active Substance: INFLIXIMAB
     Route: 043
  110. REMICADE [Concomitant]
     Active Substance: INFLIXIMAB
     Route: 040
  111. REMICADE [Concomitant]
     Active Substance: INFLIXIMAB
     Route: 040
  112. REMICADE [Concomitant]
     Active Substance: INFLIXIMAB
     Route: 040
  113. RITUXIMAB [Concomitant]
     Active Substance: RITUXIMAB
     Indication: Rheumatoid arthritis
     Route: 040
  114. RITUXIMAB [Concomitant]
     Active Substance: RITUXIMAB
     Route: 040
  115. RITUXIMAB [Concomitant]
     Active Substance: RITUXIMAB
     Route: 040
  116. RITUXIMAB [Concomitant]
     Active Substance: RITUXIMAB
     Route: 043
  117. RITUXIMAB [Concomitant]
     Active Substance: RITUXIMAB
     Route: 058
  118. RITUXIMAB [Concomitant]
     Active Substance: RITUXIMAB
     Route: 040
  119. RITUXIMAB [Concomitant]
     Active Substance: RITUXIMAB
  120. RITUXIMAB [Concomitant]
     Active Substance: RITUXIMAB
     Route: 058
  121. RITUXIMAB [Concomitant]
     Active Substance: RITUXIMAB
  122. RITUXIMAB [Concomitant]
     Active Substance: RITUXIMAB
     Route: 040
  123. RITUXIMAB [Concomitant]
     Active Substance: RITUXIMAB
     Route: 040
  124. RITUXIMAB [Concomitant]
     Active Substance: RITUXIMAB
  125. RITUXIMAB [Concomitant]
     Active Substance: RITUXIMAB
     Route: 040
  126. RITUXIMAB [Concomitant]
     Active Substance: RITUXIMAB
     Route: 040
  127. RITUXIMAB [Concomitant]
     Active Substance: RITUXIMAB
     Route: 040
  128. RITUXIMAB [Concomitant]
     Active Substance: RITUXIMAB
     Route: 040
  129. RITUXIMAB [Concomitant]
     Active Substance: RITUXIMAB
     Route: 040
  130. SULFASALAZINE [Concomitant]
     Active Substance: SULFASALAZINE
     Indication: Rheumatoid arthritis
  131. SULFASALAZINE [Concomitant]
     Active Substance: SULFASALAZINE
     Route: 058
  132. SIMPONI [Concomitant]
     Active Substance: GOLIMUMAB
     Indication: Rheumatoid arthritis
     Route: 058
  133. SIRUKUMAB [Concomitant]
     Active Substance: SIRUKUMAB
     Indication: Product used for unknown indication
  134. GOLD SODIUM THIOMALATE [Concomitant]
     Active Substance: GOLD SODIUM THIOMALATE
     Indication: Product used for unknown indication
     Route: 048
  135. GOLD SODIUM THIOMALATE [Concomitant]
     Active Substance: GOLD SODIUM THIOMALATE
     Route: 030
  136. SULFAMETHOXAZOLE AND TRIMETHOPRIM [Concomitant]
     Active Substance: SULFAMETHOXAZOLE\TRIMETHOPRIM
     Indication: Rheumatoid arthritis
     Route: 048
  137. SULFAMETHOXAZOLE AND TRIMETHOPRIM [Concomitant]
     Active Substance: SULFAMETHOXAZOLE\TRIMETHOPRIM
     Route: 048
  138. SULFASALAZINE [Concomitant]
     Active Substance: SULFASALAZINE
     Indication: Rheumatoid arthritis
  139. SULFASALAZINE [Concomitant]
     Active Substance: SULFASALAZINE
     Route: 058
  140. SULFASALAZINE [Concomitant]
     Active Substance: SULFASALAZINE
     Route: 048
  141. SULFASALAZINE [Concomitant]
     Active Substance: SULFASALAZINE
     Route: 048
  142. SULFASALAZINE [Concomitant]
     Active Substance: SULFASALAZINE
  143. SULFASALAZINE [Concomitant]
     Active Substance: SULFASALAZINE
     Route: 048
  144. SULFASALAZINE [Concomitant]
     Active Substance: SULFASALAZINE
     Route: 048
  145. SULFASALAZINE [Concomitant]
     Active Substance: SULFASALAZINE
     Route: 058
  146. SULFASALAZINE [Concomitant]
     Active Substance: SULFASALAZINE
  147. SULFASALAZINE [Concomitant]
     Active Substance: SULFASALAZINE
     Route: 048
  148. SULFASALAZINE [Concomitant]
     Active Substance: SULFASALAZINE
     Route: 048
  149. TRAMADOL HYDROCHLORIDE [Concomitant]
     Active Substance: TRAMADOL HYDROCHLORIDE
     Indication: Product used for unknown indication
  150. TRAMADOL HYDROCHLORIDE [Concomitant]
     Active Substance: TRAMADOL HYDROCHLORIDE
  151. XELJANZ [Concomitant]
     Active Substance: TOFACITINIB CITRATE
     Indication: Rheumatoid arthritis
  152. XELJANZ [Concomitant]
     Active Substance: TOFACITINIB CITRATE
     Route: 048
  153. XELJANZ [Concomitant]
     Active Substance: TOFACITINIB CITRATE
     Route: 048
  154. XELJANZ [Concomitant]
     Active Substance: TOFACITINIB CITRATE
     Route: 048
  155. XELJANZ [Concomitant]
     Active Substance: TOFACITINIB CITRATE
     Route: 048
  156. XELJANZ [Concomitant]
     Active Substance: TOFACITINIB CITRATE
     Route: 048
  157. XELJANZ [Concomitant]
     Active Substance: TOFACITINIB CITRATE
     Route: 048
  158. CORTISONE (HYDROCORTISONE) [Concomitant]
     Active Substance: HYDROCORTISONE
     Indication: Product used for unknown indication
     Route: 048
  159. ERELZI [Concomitant]
     Active Substance: ETANERCEPT-SZZS
     Indication: Rheumatoid arthritis
  160. KEVZARA [Concomitant]
     Active Substance: SARILUMAB
     Indication: Rheumatoid arthritis
  161. PERIOGARD [Concomitant]
     Active Substance: CHLORHEXIDINE GLUCONATE
     Indication: Product used for unknown indication
     Route: 002
  162. STELARA [Concomitant]
     Active Substance: USTEKINUMAB
     Indication: Rheumatoid arthritis
     Route: 058

REACTIONS (2)
  - Death [Fatal]
  - Off label use [Unknown]
